FAERS Safety Report 9452399 (Version 1)
Quarter: 2013Q3

REPORT INFORMATION
  Report Type: Spontaneous
  Country: FR (occurrence: FR)
  Receive Date: 20130812
  Receipt Date: 20130812
  Transmission Date: 20140515
  Serious: Yes (Congenital Anomaly, Other)
  Sender: FDA-Public Use
  Company Number: FR-ELI_LILLY_AND_COMPANY-FR201308000753

PATIENT
  Sex: Female

DRUGS (15)
  1. PROZAC [Suspect]
     Indication: BULIMIA NERVOSA
     Dosage: UNK UNK, UNKNOWN
     Route: 064
  2. MAGNE B6                           /00869101/ [Concomitant]
     Indication: UTERINE CONTRACTIONS DURING PREGNANCY
     Dosage: 2 DF, QD
     Route: 064
  3. CARBOCISTEINE [Concomitant]
     Indication: COUGH
     Route: 064
  4. COLLU-HEXTRIL [Concomitant]
     Dosage: UNK, QD
     Route: 064
  5. AMOXICILLINE                       /00249602/ [Concomitant]
     Indication: COUGH
     Dosage: 6 G, QD
     Route: 064
  6. CLARITHROMYCIN [Concomitant]
     Indication: COUGH
     Dosage: 500 MG, QD
     Route: 064
  7. SOLU-PRED [Concomitant]
     Indication: COUGH
     Dosage: 1 DF, QD
     Route: 064
  8. DOLIPRANE [Concomitant]
     Dosage: 1 G, UNK
     Route: 064
  9. HELICIDINE [Concomitant]
     Indication: COUGH
     Route: 064
  10. GYNO PEVARYL [Concomitant]
     Indication: VULVOVAGINAL MYCOTIC INFECTION
     Dosage: 150 MG, QD
     Route: 064
  11. FORLAX                             /00754501/ [Concomitant]
     Indication: CONSTIPATION
     Dosage: 10 G, UNK
     Route: 064
  12. TARDYFERON B9                      /00023601/ [Concomitant]
     Route: 064
  13. DAFLON                             /00426001/ [Concomitant]
     Indication: VENOUS INSUFFICIENCY
     Dosage: 2 DF, QD
     Route: 064
  14. TARDYFERON [Concomitant]
     Dosage: 80 MG, UNK
     Route: 064
  15. ELEVIT VITAMINE B9 [Concomitant]
     Route: 064

REACTIONS (2)
  - Ventricular septal defect [Recovered/Resolved]
  - Exposure during pregnancy [Recovered/Resolved]
